FAERS Safety Report 9099933 (Version 2)
Quarter: 2013Q1

REPORT INFORMATION
  Report Type: Spontaneous
  Country: US (occurrence: US)
  Receive Date: 20130214
  Receipt Date: 20130301
  Transmission Date: 20140127
  Serious: Yes (Other)
  Sender: FDA-Public Use
  Company Number: US-JNJFOC-20130204778

PATIENT
  Sex: Female

DRUGS (3)
  1. NEOSPORIN ORIGINAL OINTMENT UNSPECIFIED [Suspect]
     Indication: SUTURE INSERTION
     Route: 061
     Dates: start: 20130130, end: 20130203
  2. SYNTHROID [Concomitant]
     Indication: THYROID DISORDER
     Route: 065
  3. VITAMIN D [Concomitant]
     Indication: VITAMIN D DEFICIENCY
     Route: 065

REACTIONS (4)
  - Eye disorder [Recovering/Resolving]
  - Infection [Recovering/Resolving]
  - Scar [Recovering/Resolving]
  - Inflammation [Recovering/Resolving]
